FAERS Safety Report 18237524 (Version 1)
Quarter: 2020Q3

REPORT INFORMATION
  Report Type: Spontaneous
  Country: FR (occurrence: FR)
  Receive Date: 20200907
  Receipt Date: 20200907
  Transmission Date: 20201103
  Serious: Yes (Hospitalization)
  Sender: FDA-Public Use
  Company Number: FR-ACCORD-199760

PATIENT
  Age: 86 Year
  Sex: Female
  Weight: 46.8 kg

DRUGS (10)
  1. TARDYFERON [Suspect]
     Active Substance: FERROUS SULFATE
     Indication: PRODUCT USED FOR UNKNOWN INDICATION
     Dosage: STRENGTH: 80 MG, COATED TABLET
     Route: 048
     Dates: start: 20200702, end: 20200807
  2. VITAMIN A DULCIS [Suspect]
     Active Substance: RETINOL
     Indication: HERPES OPHTHALMIC
     Dosage: STRENGTH: 25,000 IU. PER 100 G
     Route: 047
     Dates: start: 20200715, end: 20200807
  3. MALOCIDE [PYRIMETHAMINE] [Suspect]
     Active Substance: PYRIMETHAMINE
     Indication: EYE INFECTION TOXOPLASMAL
     Dosage: STRENGTH: 50 MG
     Route: 048
     Dates: start: 20200729, end: 20200807
  4. ZITHROMAX [Suspect]
     Active Substance: AZITHROMYCIN DIHYDRATE
     Indication: EYE INFECTION TOXOPLASMAL
     Route: 048
     Dates: start: 20200729, end: 20200807
  5. ATORVASTATIN/ATORVASTATIN CALCIUM [Suspect]
     Active Substance: ATORVASTATIN CALCIUM
     Indication: HYPERCHOLESTEROLAEMIA
     Route: 048
     Dates: end: 20200807
  6. MAXIDEX [Suspect]
     Active Substance: DEXAMETHASONE
     Indication: HERPES OPHTHALMIC
     Dosage: STRENGTH: 0.1%
     Route: 047
     Dates: start: 20200715, end: 20200807
  7. DIFFU K [Suspect]
     Active Substance: POTASSIUM CHLORIDE
     Indication: PROPHYLAXIS
     Route: 048
     Dates: start: 20200713, end: 20200807
  8. COVERAM [Suspect]
     Active Substance: AMLODIPINE\PERINDOPRIL
     Indication: HYPERTENSION
     Dosage: STRENGTH: 10 MG / 5 MG
     Route: 048
     Dates: end: 20200807
  9. PYOSTACINE [Suspect]
     Active Substance: PRISTINAMYCIN
     Indication: SINUSITIS
     Dosage: STRENGTH: 500 MG, SCORED FILM?COATED TABLET
     Route: 048
     Dates: start: 20200804, end: 20200807
  10. ZELITREX [Suspect]
     Active Substance: VALACYCLOVIR HYDROCHLORIDE
     Indication: HERPES OPHTHALMIC
     Dosage: STRENGTH: 500 MG
     Route: 048
     Dates: start: 20200713, end: 20200807

REACTIONS (3)
  - Hallucination, visual [Recovered/Resolved]
  - Confusional state [Recovered/Resolved]
  - Seizure [Recovered/Resolved]

NARRATIVE: CASE EVENT DATE: 20200806
